FAERS Safety Report 7654509 (Version 2)
Quarter: 2012Q4

REPORT INFORMATION
  Report Type: 
  Country: US (occurrence: US)
  Receive Date: 20101103
  Receipt Date: 20120919
  Transmission Date: 20130627
  Serious: Yes (Death, Other)
  Sender: FDA-Public Use
  Company Number: US-AMGEN-USASP2010000703

PATIENT
  Age: 83 Year
  Sex: Female

DRUGS (3)
  1. NPLATE [Suspect]
     Indication: IDIOPATHIC THROMBOCYTOPENIC PURPURA
     Dosage: 2 mug/kg, qwk
     Dates: start: 20100922, end: 20101013
  2. PREDNISONE [Concomitant]
     Dosage: UNK, qd
     Dates: start: 20100929
  3. CYCLOSPORINE [Concomitant]
     Dosage: UNK UNK, bid
     Dates: start: 20100929, end: 20101020

REACTIONS (2)
  - Platelet count increased [Unknown]
  - Death [Fatal]
